FAERS Safety Report 12215953 (Version 2)
Quarter: 2016Q2

REPORT INFORMATION
  Report Type: Spontaneous
  Country: US (occurrence: US)
  Receive Date: 20160328
  Receipt Date: 20160425
  Transmission Date: 20160815
  Serious: No
  Sender: FDA-Public Use
  Company Number: US-ELI_LILLY_AND_COMPANY-US201603001661

PATIENT
  Age: 13 Year
  Sex: Male
  Weight: 45 kg

DRUGS (2)
  1. HUMATROPE [Suspect]
     Active Substance: SOMATROPIN
     Indication: GROWTH HORMONE DEFICIENCY
     Dosage: 2.0 MG, 6/W
     Route: 058
     Dates: start: 20160223, end: 20160225
  2. HUMATROPE [Suspect]
     Active Substance: SOMATROPIN
     Dosage: 2 MG, 6/W
     Route: 058
     Dates: start: 20160301

REACTIONS (3)
  - Feeling hot [Not Recovered/Not Resolved]
  - Insomnia [Unknown]
  - Hypersensitivity [Not Recovered/Not Resolved]

NARRATIVE: CASE EVENT DATE: 20160223
